FAERS Safety Report 6976493-2 (Version None)
Quarter: 2010Q3

REPORT INFORMATION
  Report Type: 
  Country: None (occurrence: None)
  Receive Date: 20100910
  Receipt Date: 20100830
  Transmission Date: 20110219
  Serious: Yes (Other)
  Sender: FDA-Public Use
  Company Number: US-PFIZER INC-2010109209

PATIENT
  Sex: Female
  Weight: 52.2 kg

DRUGS (3)
  1. LYRICA [Suspect]
     Indication: PLANTAR FASCIITIS
     Dosage: 150 MG, 1X/DAY
     Route: 048
     Dates: start: 20090101
  2. ESTRACE [Concomitant]
     Indication: HORMONE LEVEL ABNORMAL
     Dosage: 1 MG, UNK
     Route: 048
  3. IBUPROFEN [Concomitant]
     Indication: PLANTAR FASCIITIS
     Dosage: 600 MG, 2X/DAY
     Route: 048

REACTIONS (1)
  - VISUAL ACUITY REDUCED [None]
